FAERS Safety Report 9605091 (Version 2)
Quarter: 2013Q4

REPORT INFORMATION
  Report Type: Spontaneous
  Country: US (occurrence: US)
  Receive Date: 20131008
  Receipt Date: 20131220
  Transmission Date: 20140711
  Serious: Yes (Hospitalization, Other)
  Sender: FDA-Public Use
  Company Number: US-ELI_LILLY_AND_COMPANY-US201309009902

PATIENT
  Sex: Female
  Weight: 78.45 kg

DRUGS (8)
  1. HUMALOG LISPRO [Suspect]
     Indication: TYPE 2 DIABETES MELLITUS
     Dosage: 70 U, EACH EVENING
  2. HUMALOG 25% LISPRO, 75% NPL [Suspect]
     Indication: TYPE 2 DIABETES MELLITUS
     Dosage: 75 U, EACH MORNING
  3. HUMALOG 25% LISPRO, 75% NPL [Suspect]
     Dosage: 65 U, EACH EVENING
  4. HUMALOG 25% LISPRO, 75% NPL [Suspect]
     Dosage: 75 U, BID
  5. HUMALOG 25% LISPRO, 75% NPL [Suspect]
     Dosage: 60 U, QD
     Dates: start: 20120622
  6. HUMALOG 25% LISPRO, 75% NPL [Suspect]
     Dosage: 52 U, EACH EVENING
     Dates: start: 20120622
  7. DIOVAN [Concomitant]
  8. ZEBETA [Concomitant]

REACTIONS (15)
  - Blood glucose increased [Recovering/Resolving]
  - Loss of consciousness [Unknown]
  - Convulsion [Unknown]
  - Meningitis [Unknown]
  - Urinary bladder haemorrhage [Unknown]
  - Renal failure [Unknown]
  - Weight increased [Not Recovered/Not Resolved]
  - Erythema [Unknown]
  - Amnesia [Unknown]
  - Gait disturbance [Unknown]
  - Abdominal distension [Unknown]
  - Nasal congestion [Unknown]
  - Paranasal sinus hypersecretion [Unknown]
  - Blood glucose increased [Recovering/Resolving]
  - Rash [Unknown]
